FAERS Safety Report 4451931-8 (Version None)
Quarter: 2004Q3

REPORT INFORMATION
  Report Type: 
  Country: None (occurrence: None)
  Receive Date: 20040917
  Receipt Date: 20040909
  Transmission Date: 20050211
  Serious: Yes (Hospitalization)
  Sender: FDA-Public Use
  Company Number: 200416929US

PATIENT
  Age: 53 Year
  Sex: Male

DRUGS (3)
  1. LANTUS [Suspect]
     Indication: DIABETES MELLITUS NON-INSULIN-DEPENDENT
     Dosage: DOSE UNIT: UNITS
     Route: 051
     Dates: end: 20040906
  2. INSULIN NOS [Concomitant]
     Dosage: DOSE: 12-15; DOSE UNIT: UNITS
  3. TPN [Concomitant]

REACTIONS (4)
  - HYPOGLYCAEMIA [None]
  - POST PROCEDURAL COMPLICATION [None]
  - RENAL FAILURE ACUTE [None]
  - SURGERY [None]
